FAERS Safety Report 17759758 (Version 2)
Quarter: 2020Q4

REPORT INFORMATION
  Report Type: Spontaneous
  Country: AU (occurrence: AU)
  Receive Date: 20200508
  Receipt Date: 20201210
  Transmission Date: 20210113
  Serious: Yes (Other)
  Sender: FDA-Public Use
  Company Number: AU-PFIZER INC-2020182263

PATIENT
  Age: 26 Year
  Sex: Female

DRUGS (9)
  1. MIDAZOLAM. [Concomitant]
     Active Substance: MIDAZOLAM
     Indication: INDUCTION OF ANAESTHESIA
     Dosage: 2.5 MG
  2. DIAZEPAM. [Concomitant]
     Active Substance: DIAZEPAM
     Indication: ANAESTHETIC PREMEDICATION
     Dosage: 5 MG
     Route: 048
  3. PROPOFOL. [Suspect]
     Active Substance: PROPOFOL
     Indication: INDUCTION OF ANAESTHESIA
     Dosage: 120 MG
  4. LIGNOCAINE WITH ADRENALINE [Concomitant]
     Active Substance: EPINEPHRINE BITARTRATE\LIDOCAINE HYDROCHLORIDE
     Indication: ANAESTHESIA
     Dosage: UNK (LIGNOCAINE 10 ML1 % WITH ADRENALINE, 1 :200,000, INJECTED INTO NOSE)
     Route: 045
  5. LORAZEPAM. [Concomitant]
     Active Substance: LORAZEPAM
     Indication: ANAESTHETIC PREMEDICATION
     Dosage: 2.5 MG
     Route: 048
  6. DROPERIDOL. [Concomitant]
     Active Substance: DROPERIDOL
     Indication: INDUCTION OF ANAESTHESIA
     Dosage: 2.5 MG
  7. OMNOPON [PAPAVER SOMNIFERUM EXTRACT] [Concomitant]
     Indication: INDUCTION OF ANAESTHESIA
     Dosage: 20 MG
  8. DILANTIN [Concomitant]
     Active Substance: PHENYTOIN
     Indication: EPILEPSY
     Dosage: 200 MG, 3X/DAY
  9. NITROUS OXIDE\OXYGEN [Concomitant]
     Active Substance: NITROUS OXIDE\OXYGEN
     Indication: INDUCTION OF ANAESTHESIA
     Dosage: UNK

REACTIONS (1)
  - Generalised tonic-clonic seizure [Recovered/Resolved]
